FAERS Safety Report 23223907 (Version 2)
Quarter: 2024Q3

REPORT INFORMATION
  Report Type: Spontaneous
  Country: US (occurrence: US)
  Receive Date: 20231124
  Receipt Date: 20240812
  Transmission Date: 20241017
  Serious: No
  Sender: SANOFI AVENTIS
  Company Number: US-SA-SAC20231116001116

PATIENT
  Sex: Female

DRUGS (2)
  1. DUPIXENT [Suspect]
     Active Substance: DUPILUMAB
     Indication: Dermatitis atopic
     Dosage: 200 MG, QOW
     Route: 058
  2. DUPIXENT [Suspect]
     Active Substance: DUPILUMAB
     Indication: Post inflammatory pigmentation change

REACTIONS (4)
  - Erythema [Unknown]
  - Dermatitis atopic [Unknown]
  - Rash [Unknown]
  - Product use in unapproved indication [Unknown]
